FAERS Safety Report 16767903 (Version 1)
Quarter: 2019Q3

REPORT INFORMATION
  Report Type: Report from Study
  Country: AE (occurrence: AE)
  Receive Date: 20190903
  Receipt Date: 20190903
  Transmission Date: 20191005
  Serious: Yes (Hospitalization)
  Sender: FDA-Public Use
  Company Number: AE-JNJFOC-20190700011

PATIENT
  Age: 21 Year
  Sex: Male

DRUGS (1)
  1. STELARA [Suspect]
     Active Substance: USTEKINUMAB
     Indication: CROHN^S DISEASE
     Route: 058
     Dates: start: 201801

REACTIONS (7)
  - Anal fissure [Recovering/Resolving]
  - Wound infection bacterial [Recovering/Resolving]
  - Procedural pain [Recovering/Resolving]
  - Sepsis [Recovering/Resolving]
  - Perineal abscess [Recovering/Resolving]
  - Rectal stenosis [Recovering/Resolving]
  - Hypokalaemia [Recovering/Resolving]

NARRATIVE: CASE EVENT DATE: 20190808
